FAERS Safety Report 20514703 (Version 5)
Quarter: 2022Q2

REPORT INFORMATION
  Report Type: Report from Study
  Country: CA (occurrence: CA)
  Receive Date: 20220224
  Receipt Date: 20220523
  Transmission Date: 20220721
  Serious: Yes (Other)
  Sender: FDA-Public Use
  Company Number: CA-OTSUKA-2021_040292

PATIENT
  Sex: Male

DRUGS (2)
  1. CEDAZURIDINE\DECITABINE [Suspect]
     Active Substance: CEDAZURIDINE\DECITABINE
     Indication: Myelodysplastic syndrome
     Dosage: 1 TABLET DAILY 4/28 DAYS
     Route: 065
     Dates: start: 20210902
  2. CEDAZURIDINE\DECITABINE [Suspect]
     Active Substance: CEDAZURIDINE\DECITABINE
     Dosage: 135MG (35 MG DECITABINE AND 100 MG CEDAZURIDINE), QD 1-3 TABLETS EVERY 28 DAYS CYCLE
     Route: 065
     Dates: start: 20220406, end: 20220503

REACTIONS (5)
  - Haemoglobin abnormal [Unknown]
  - Neutropenia [Unknown]
  - Therapy interrupted [Unknown]
  - Product use issue [Unknown]
  - Therapy cessation [Unknown]
